FAERS Safety Report 6436020-5 (Version None)
Quarter: 2009Q4

REPORT INFORMATION
  Report Type: 
  Country: None (occurrence: None)
  Receive Date: 20091111
  Receipt Date: 20091105
  Transmission Date: 20100525
  Serious: Yes (Hospitalization)
  Sender: FDA-Public Use
  Company Number: BR-GILEAD-2009-0024808

PATIENT
  Sex: Female
  Weight: 56 kg

DRUGS (7)
  1. AMBRISENTAN [Suspect]
     Indication: PULMONARY ARTERIAL HYPERTENSION
     Dates: start: 20051026
  2. DIGOXIN [Concomitant]
     Dates: start: 20091001
  3. DILTIAZEM [Concomitant]
     Dates: start: 20060314, end: 20091010
  4. SPIRONOLACTONE [Concomitant]
     Dates: start: 20051016
  5. WARFARIN [Concomitant]
     Dates: start: 20061028
  6. FUROSEMIDE [Concomitant]
     Dates: start: 20060717
  7. ACETAZOLAMIDE [Concomitant]
     Dates: start: 20061028

REACTIONS (1)
  - HYPOTENSION [None]
